FAERS Safety Report 7007706-9 (Version None)
Quarter: 2010Q3

REPORT INFORMATION
  Report Type: 
  Country: None (occurrence: None)
  Receive Date: 20100922
  Receipt Date: 20100811
  Transmission Date: 20110219
  Serious: Yes (Other)
  Sender: FDA-Public Use
  Company Number: US-BAXTER-2010BH003537

PATIENT
  Age: 42 Year
  Sex: Male
  Weight: 102 kg

DRUGS (13)
  1. HEPARIN SODIUM INJECTION [Suspect]
     Indication: PRODUCT USED FOR UNKNOWN INDICATION
     Route: 042
     Dates: start: 20080201, end: 20080201
  2. HEPARIN SODIUM INJECTION [Suspect]
     Route: 058
     Dates: start: 20080201, end: 20080201
  3. HEPARIN SODIUM INJECTION [Suspect]
     Route: 058
     Dates: start: 20080521, end: 20080522
  4. HEPARIN SODIUM INJECTION [Suspect]
     Route: 042
     Dates: start: 20080501, end: 20080501
  5. EFFEXOR [Concomitant]
     Indication: PRODUCT USED FOR UNKNOWN INDICATION
     Route: 065
  6. XANAX [Concomitant]
     Indication: PRODUCT USED FOR UNKNOWN INDICATION
     Route: 065
  7. SINGULAIR [Concomitant]
     Indication: PRODUCT USED FOR UNKNOWN INDICATION
     Route: 065
  8. SODIUM CHLORIDE 0.9% IN PLASTIC CONTAINER [Concomitant]
     Indication: PRODUCT USED FOR UNKNOWN INDICATION
     Route: 065
  9. DEXTROSE 5% AND SODIUM CHLORIDE 0.9% IN PLASTIC CONTAINER [Concomitant]
     Indication: PRODUCT USED FOR UNKNOWN INDICATION
     Route: 065
  10. LORAZEPAM [Concomitant]
     Indication: PRODUCT USED FOR UNKNOWN INDICATION
     Route: 065
  11. REGLAN [Concomitant]
     Indication: PRODUCT USED FOR UNKNOWN INDICATION
     Route: 042
  12. ZOFRAN [Concomitant]
     Indication: PRODUCT USED FOR UNKNOWN INDICATION
     Route: 042
  13. DILAUDID [Concomitant]
     Indication: PRODUCT USED FOR UNKNOWN INDICATION
     Route: 042

REACTIONS (9)
  - ABDOMINAL PAIN [None]
  - APATHY [None]
  - DEPRESSION [None]
  - HYPERHIDROSIS [None]
  - INSOMNIA [None]
  - NEUROPATHY PERIPHERAL [None]
  - PANIC ATTACK [None]
  - RASH [None]
  - SYNCOPE [None]
